FAERS Safety Report 4301106-8 (Version None)
Quarter: 2004Q1

REPORT INFORMATION
  Report Type: 
  Country: None (occurrence: None)
  Receive Date: 20040219
  Receipt Date: 20040204
  Transmission Date: 20041129
  Serious: Yes (Hospitalization)
  Sender: FDA-Public Use
  Company Number: 2004IM000215

PATIENT
  Age: 46 Year
  Sex: Male

DRUGS (5)
  1. ADVAFERON (A643_INTERFERON ALFACON-1) [Suspect]
     Indication: HEPATITIS C
     Dosage: 18 MU;QD;SUBCUTANEOUS
     Route: 058
     Dates: start: 20020329, end: 20020409
  2. LOXOPROFEN [Concomitant]
  3. SUCRALFATE [Concomitant]
  4. URSODEOXYCHOLIC ACID [Concomitant]
  5. GLYCYRON [Concomitant]

REACTIONS (5)
  - GLUCOSE TOLERANCE IMPAIRED [None]
  - NEUTROPHIL COUNT DECREASED [None]
  - PLEURISY [None]
  - PNEUMONIA [None]
  - RESPIRATORY DISTRESS [None]
